FAERS Safety Report 19376471 (Version 2)
Quarter: 2021Q3

REPORT INFORMATION
  Report Type: Spontaneous
  Country: JP (occurrence: JP)
  Receive Date: 20210604
  Receipt Date: 20210715
  Transmission Date: 20211014
  Serious: Yes (Hospitalization)
  Sender: FDA-Public Use
  Company Number: JP-MYLANLABS-2021M1032294

PATIENT
  Age: 73 Year
  Sex: Male

DRUGS (2)
  1. PROGRAF [Suspect]
     Active Substance: TACROLIMUS
     Indication: IMMUNOSUPPRESSANT DRUG THERAPY
     Route: 065
  2. PROGRAF [Suspect]
     Active Substance: TACROLIMUS
     Indication: MYASTHENIA GRAVIS

REACTIONS (4)
  - Influenza [Recovering/Resolving]
  - Pneumonia pneumococcal [Recovering/Resolving]
  - Pneumonia cryptococcal [Recovering/Resolving]
  - Organising pneumonia [Recovering/Resolving]
